FAERS Safety Report 7214537-3 (Version None)
Quarter: 2011Q1

REPORT INFORMATION
  Report Type: 
  Country: None (occurrence: None)
  Receive Date: 20110107
  Receipt Date: 20100618
  Transmission Date: 20110831
  Serious: Yes (Other)
  Sender: FDA-Public Use
  Company Number: US-BAYER-201021248NA

PATIENT
  Sex: Female
  Weight: 81.818 kg

DRUGS (5)
  1. ALEVE [Concomitant]
  2. ZOMIG [Concomitant]
  3. DIURETICS [Concomitant]
  4. YAZ [Suspect]
     Indication: POST PROCEDURAL PULMONARY EMBOLISM
     Dosage: UNK UNK, QD
     Route: 048
     Dates: start: 20060501, end: 20070301
  5. ALLEGRA [Concomitant]

REACTIONS (12)
  - PAIN IN EXTREMITY [None]
  - ARTHRALGIA [None]
  - LOWER EXTREMITY MASS [None]
  - DEEP VEIN THROMBOSIS [None]
  - THROMBOPHLEBITIS SUPERFICIAL [None]
  - POST PROCEDURAL PULMONARY EMBOLISM [None]
  - THROMBOSIS [None]
  - TENDON PAIN [None]
  - OEDEMA PERIPHERAL [None]
  - GAIT DISTURBANCE [None]
  - TENDONITIS [None]
  - TENDON INJURY [None]
